FAERS Safety Report 5911721-3 (Version None)
Quarter: 2008Q4

REPORT INFORMATION
  Report Type: 
  Country: None (occurrence: None)
  Receive Date: 20081008
  Receipt Date: 20081001
  Transmission Date: 20090506
  Serious: Yes (Death)
  Sender: FDA-Public Use
  Company Number: IT-RANBAXY-2008RR-18411

PATIENT
  Age: 65 Year
  Sex: Male

DRUGS (10)
  1. VORICONAZOLE [Suspect]
     Dosage: 400 MG, BID
     Route: 042
  2. VORICONAZOLE [Suspect]
     Dosage: 200 MG, BID
     Route: 042
  3. FLUCONAZOLO RANBAXY 100 MG CAPSULE [Suspect]
     Dosage: 400 MG, UNK
     Route: 042
  4. FLUCONAZOLO RANBAXY 100 MG CAPSULE [Suspect]
     Dosage: 100 MG, QD
  5. EVEROLIMUS [Suspect]
     Indication: IMMUNOSUPPRESSION
     Dosage: 0.75 MG, BID
     Route: 048
  6. EVEROLIMUS [Suspect]
     Dosage: 0.25 MG, QD
  7. CYCLOSPORINE [Concomitant]
     Indication: IMMUNOSUPPRESSION
  8. MYCOPHENOLATE MOFETIL [Concomitant]
     Indication: IMMUNOSUPPRESSION
  9. TEICOPLANIN [Concomitant]
     Indication: SEPSIS
  10. PIPERACILLIN AND TAZOBACTAM [Concomitant]
     Indication: SEPSIS

REACTIONS (1)
  - DRUG INTERACTION [None]
